FAERS Safety Report 12774713 (Version 1)
Quarter: 2016Q3

REPORT INFORMATION
  Report Type: Spontaneous
  Country: US (occurrence: US)
  Receive Date: 20160923
  Receipt Date: 20160923
  Transmission Date: 20161109
  Serious: No
  Sender: FDA-Public Use
  Company Number: US-BRISTOL-MYERS SQUIBB COMPANY-BMS-2016-078816

PATIENT
  Sex: Female
  Weight: 54.42 kg

DRUGS (1)
  1. COUMADIN [Suspect]
     Active Substance: WARFARIN SODIUM
     Indication: TRANSIENT ISCHAEMIC ATTACK
     Route: 065

REACTIONS (4)
  - Disorientation [Unknown]
  - Dizziness [Unknown]
  - Headache [Unknown]
  - Abnormal behaviour [Unknown]
